FAERS Safety Report 11751537 (Version 1)
Quarter: 2015Q4

REPORT INFORMATION
  Report Type: Spontaneous
  Country: US (occurrence: None)
  Receive Date: 20151118
  Receipt Date: 20151118
  Transmission Date: 20160304
  Serious: Yes (Other)
  Sender: FDA-Public Use
  Company Number: US-MDT-ADR-2015-02183

PATIENT
  Sex: Female

DRUGS (2)
  1. COMPOUNDED BACLOFEN INTRATHECAL 400MCG/ML [Suspect]
     Active Substance: BACLOFEN
     Indication: PAIN
     Dosage: 230MCG/DAY
  2. CLONIDINE (INTRATHECAL) 400MCG/ML [Suspect]
     Active Substance: CLONIDINE
     Indication: PAIN
     Dosage: 230MCG/DAY

REACTIONS (3)
  - Back pain [None]
  - Drug withdrawal syndrome [None]
  - Therapeutic response decreased [None]
